FAERS Safety Report 9002535 (Version 2)
Quarter: 2013Q1

REPORT INFORMATION
  Report Type: Spontaneous
  Country: IT (occurrence: IT)
  Receive Date: 20130107
  Receipt Date: 20130128
  Transmission Date: 20140127
  Serious: Yes (Hospitalization)
  Sender: FDA-Public Use
  Company Number: IT-JNJFOC-20121213847

PATIENT
  Age: 13 Year
  Sex: Male
  Weight: 60 kg

DRUGS (2)
  1. RISPERDAL [Suspect]
     Indication: AUTISM
     Route: 048
     Dates: start: 20121226, end: 20121226
  2. RISPERDAL [Suspect]
     Indication: AUTISM
     Route: 048

REACTIONS (4)
  - Sopor [Recovered/Resolved]
  - Accidental exposure to product by child [Unknown]
  - Accidental overdose [Recovered/Resolved]
  - Headache [Recovered/Resolved]
